FAERS Safety Report 9747524 (Version 1)
Quarter: 2013Q4

REPORT INFORMATION
  Report Type: Report from Study
  Country: JP (occurrence: JP)
  Receive Date: 20131212
  Receipt Date: 20131212
  Transmission Date: 20140711
  Serious: Yes (Death, Other)
  Sender: FDA-Public Use
  Company Number: JP-ALEXION PHARMACEUTICALS INC.-A201303991

PATIENT
  Age: 71 Year
  Sex: Male

DRUGS (7)
  1. SOLIRIS [Suspect]
     Indication: PAROXYSMAL NOCTURNAL HAEMOGLOBINURIA
     Dosage: 600 MG, QW
     Route: 042
     Dates: start: 20120825
  2. SOLIRIS [Suspect]
     Dosage: 900 MG, Q2W
     Route: 042
     Dates: end: 20130829
  3. HALCION [Concomitant]
     Dosage: 0.125 MG, QD
     Route: 048
     Dates: start: 20120507
  4. DAONIL M [Concomitant]
     Dosage: 2.5 MG, QD
     Route: 048
     Dates: start: 20121011, end: 20130910
  5. VOGLIBOSE [Concomitant]
     Dosage: 0.6 MG, QD
     Route: 048
     Dates: start: 20121011
  6. DIGOXIN [Concomitant]
     Dosage: 0.125 MG, QD
     Route: 048
     Dates: start: 20120419
  7. WARFARIN [Concomitant]
     Dosage: 1.5 MG, QD
     Route: 048
     Dates: start: 20120611

REACTIONS (10)
  - Lung neoplasm malignant [Fatal]
  - Metastases to liver [Fatal]
  - Metastases to bone [Fatal]
  - Subdural haematoma [Fatal]
  - Haemoglobin decreased [Unknown]
  - Drug ineffective [Unknown]
  - Hypoaesthesia [Unknown]
  - Muscular weakness [Unknown]
  - Blood lactate dehydrogenase increased [Unknown]
  - Myalgia [Unknown]
